FAERS Safety Report 5953365-3 (Version None)
Quarter: 2008Q4

REPORT INFORMATION
  Report Type: 
  Country: None (occurrence: None)
  Receive Date: 20081031
  Receipt Date: 20080404
  Transmission Date: 20090506
  Serious: Yes (Other)
  Sender: FDA-Public Use
  Company Number: US-WYE-H03505908

PATIENT
  Age: 57 Year
  Sex: Female
  Weight: 63.56 kg

DRUGS (1)
  1. PREMARIN [Suspect]
     Indication: ATROPHIC VULVOVAGINITIS
     Dosage: 1 G 1X PER 1 DAY, VAGINAL
     Route: 067
     Dates: start: 20080307, end: 20080312

REACTIONS (2)
  - PRODUCT QUALITY ISSUE [None]
  - UNEVALUABLE EVENT [None]
